FAERS Safety Report 4674609-4 (Version None)
Quarter: 2005Q2

REPORT INFORMATION
  Report Type: 
  Country: None (occurrence: None)
  Receive Date: 20050526
  Receipt Date: 20050511
  Transmission Date: 20051028
  Serious: Yes (Other)
  Sender: FDA-Public Use
  Company Number: 200513913GDDC

PATIENT
  Age: 54 Year
  Sex: Female

DRUGS (5)
  1. NICORETTE [Suspect]
     Dosage: 2MG PER DAY
     Route: 002
     Dates: start: 20050301
  2. NICOTROL [Suspect]
     Route: 062
     Dates: start: 20050101, end: 20050201
  3. MESALAMINE [Concomitant]
  4. AZATHIOPRINE [Concomitant]
  5. COLESTIPOL [Concomitant]

REACTIONS (3)
  - DEPRESSED MOOD [None]
  - OBSESSIVE THOUGHTS [None]
  - SUICIDAL IDEATION [None]
